FAERS Safety Report 22378915 (Version 1)
Quarter: 2023Q2

REPORT INFORMATION
  Report Type: Spontaneous
  Country: US (occurrence: US)
  Receive Date: 20230529
  Receipt Date: 20230529
  Transmission Date: 20230722
  Serious: No
  Sender: FDA-Public Use
  Company Number: US-EPICPHARMA-US-2023EPCSPO00898

PATIENT
  Sex: Female

DRUGS (3)
  1. RIFAMPIN [Suspect]
     Active Substance: RIFAMPIN
     Indication: Mycobacterial infection
     Route: 065
  2. ETHAMBUTOL HYDROCHLORIDE [Suspect]
     Active Substance: ETHAMBUTOL HYDROCHLORIDE
     Indication: Mycobacterial infection
     Dosage: 800 MG
     Route: 065
  3. AZITHROMYCIN [Suspect]
     Active Substance: AZITHROMYCIN
     Indication: Mycobacterial infection
     Route: 065

REACTIONS (3)
  - Gastrointestinal disorder [Unknown]
  - Product use in unapproved indication [Unknown]
  - Wrong technique in product usage process [Unknown]
